FAERS Safety Report 8595859-0 (Version None)
Quarter: 2012Q3

REPORT INFORMATION
  Report Type: 
  Country: None (occurrence: None)
  Receive Date: 20120815
  Receipt Date: 20120807
  Transmission Date: 20120928
  Serious: Yes (Hospitalization, Other)
  Sender: FDA-Public Use
  Company Number: IT-PFIZER INC-2012182312

PATIENT
  Age: 65 Year
  Sex: Female

DRUGS (8)
  1. RAMIPRIL [Suspect]
     Indication: HYPERTENSION
     Dosage: 5 MG, DAILY
     Route: 048
     Dates: start: 20070101, end: 20120719
  2. METFORMIN HYDROCHLORIDE [Concomitant]
     Dosage: UNK
  3. AMLODIPINE BESILATE [Concomitant]
     Dosage: UNK
  4. BISOPROLOL FUMARATE [Concomitant]
     Dosage: UNK
  5. LANSOPRAZOLE [Concomitant]
     Dosage: UNK
  6. LORAZEPAM [Concomitant]
     Dosage: UNK
  7. LASIX [Suspect]
     Indication: HYPERTENSION
     Dosage: 25 MG, DAILY
     Route: 048
     Dates: start: 20070101, end: 20120719
  8. COUMADIN [Concomitant]
     Indication: ATRIAL FIBRILLATION
     Dosage: UNK

REACTIONS (5)
  - FALL [None]
  - BRADYKINESIA [None]
  - HYPONATRAEMIA [None]
  - PSYCHOMOTOR RETARDATION [None]
  - BRADYPHRENIA [None]
